FAERS Safety Report 19025953 (Version 1)
Quarter: 2021Q1

REPORT INFORMATION
  Report Type: Spontaneous
  Country: US (occurrence: US)
  Receive Date: 20210317
  Receipt Date: 20210317
  Transmission Date: 20210420
  Serious: Yes (Hospitalization)
  Sender: FDA-Public Use
  Company Number: None

PATIENT
  Age: 7 Year
  Sex: Male
  Weight: 15.7 kg

DRUGS (24)
  1. CEFEPIME [Concomitant]
     Active Substance: CEFEPIME HYDROCHLORIDE
  2. ALBUTEROL. [Concomitant]
     Active Substance: ALBUTEROL
  3. AMOXICILLIN?CLAVULANATE [Concomitant]
     Active Substance: AMOXICILLIN\CLAVULANIC ACID
  4. FAMOTIDINE. [Concomitant]
     Active Substance: FAMOTIDINE
  5. CLONAZEPAM. [Concomitant]
     Active Substance: CLONAZEPAM
  6. ACETAMINOPHEN. [Concomitant]
     Active Substance: ACETAMINOPHEN
  7. CYPROHEPTADINE. [Concomitant]
     Active Substance: CYPROHEPTADINE
  8. FLUTICASONE HFA [Concomitant]
     Active Substance: FLUTICASONE
  9. IPRATROPIUM [Concomitant]
     Active Substance: IPRATROPIUM
  10. GLYCOPYRROLATE. [Concomitant]
     Active Substance: GLYCOPYRROLATE
  11. MIRALAX [Concomitant]
     Active Substance: POLYETHYLENE GLYCOL 3350
  12. REMDESIVIR 40MG [Suspect]
     Active Substance: REMDESIVIR
     Route: 042
  13. LIDOCAINE 1% [Concomitant]
     Active Substance: LIDOCAINE
  14. RACEMIC EPINEPHRINE [Concomitant]
     Active Substance: RACEPINEPHRINE
  15. BACLOFEN. [Concomitant]
     Active Substance: BACLOFEN
  16. REMDESIVIR 80MG [Suspect]
     Active Substance: REMDESIVIR
     Indication: COVID-19
     Route: 042
     Dates: start: 20210110, end: 20210114
  17. DEPAKOTE SPRINKLES [Concomitant]
     Active Substance: DIVALPROEX SODIUM
  18. OMEPRAZOLE. [Concomitant]
     Active Substance: OMEPRAZOLE
  19. LACTOBACILLUS RHAMNOSUS GG [Concomitant]
  20. NORMAL SALINE BOLUS [Concomitant]
  21. CEFTRIAXONE. [Concomitant]
     Active Substance: CEFTRIAXONE
  22. CHOLECALCIFEROL [Concomitant]
     Active Substance: CHOLECALCIFEROL
  23. COVID?19 CONVALESCENT PLASMA. [Concomitant]
     Active Substance: COVID-19 CONVALESCENT PLASMA
  24. MELATONIN [Concomitant]
     Active Substance: MELATONIN

REACTIONS (3)
  - Lethargy [None]
  - Seizure [None]
  - Pneumonia aspiration [None]

NARRATIVE: CASE EVENT DATE: 20210131
